FAERS Safety Report 10210670 (Version 1)
Quarter: 2014Q2

REPORT INFORMATION
  Report Type: Spontaneous
  Country: US (occurrence: None)
  Receive Date: 20140529
  Receipt Date: 20140529
  Transmission Date: 20141212
  Serious: Yes (Other)
  Sender: FDA-Public Use
  Company Number: None

PATIENT
  Age: 53 Year
  Sex: Female
  Weight: 120 kg

DRUGS (6)
  1. TIVICAY [Suspect]
  2. TIVICAY (DOLUTEGRAVIR) [Concomitant]
  3. ABACAVIR/LAMIVUDINE [Concomitant]
  4. BECLOMETHASONE [Concomitant]
  5. ALBUTEROL [Concomitant]
  6. NAPROXEN [Concomitant]

REACTIONS (4)
  - Headache [None]
  - Dizziness [None]
  - Mental impairment [None]
  - Memory impairment [None]
